FAERS Safety Report 23408173 (Version 3)
Quarter: 2024Q1

REPORT INFORMATION
  Report Type: Report from Study
  Country: US (occurrence: US)
  Receive Date: 20240117
  Receipt Date: 20240308
  Transmission Date: 20240410
  Serious: No
  Sender: FDA-Public Use
  Company Number: US-AstraZeneca-CH-00543876A

PATIENT
  Sex: Female

DRUGS (1)
  1. STRENSIQ [Suspect]
     Active Substance: ASFOTASE ALFA
     Indication: Product used for unknown indication
     Dosage: 87 MILLIGRAM, QD
     Route: 058

REACTIONS (7)
  - Bronchitis [Recovered/Resolved]
  - Sinusitis [Recovered/Resolved]
  - Muscular weakness [Unknown]
  - Pain in extremity [Unknown]
  - Cough [Unknown]
  - Malaise [Unknown]
  - Injection site pain [Recovered/Resolved]
